FAERS Safety Report 6199038-6 (Version None)
Quarter: 2009Q2

REPORT INFORMATION
  Report Type: 
  Country: None (occurrence: None)
  Receive Date: 20090519
  Receipt Date: 20090519
  Transmission Date: 20091009
  Serious: Yes (Death)
  Sender: FDA-Public Use
  Company Number: None

PATIENT
  Sex: Male
  Weight: 83.9154 kg

DRUGS (2)
  1. ZOLPIDEM [Suspect]
     Indication: INSOMNIA
     Dates: start: 20080716, end: 20081012
  2. HYDROCODONE BITARTRATE + ACETAMINOPHEN [Suspect]
     Indication: PAIN
     Dates: start: 20081001, end: 20081012

REACTIONS (8)
  - COMPLETED SUICIDE [None]
  - DEPRESSION [None]
  - DRUG INTERACTION [None]
  - EXPOSURE TO TOXIC AGENT [None]
  - LOSS OF CONSCIOUSNESS [None]
  - MEMORY IMPAIRMENT [None]
  - PROSTATITIS [None]
  - SOMNAMBULISM [None]
